FAERS Safety Report 7994159-7 (Version None)
Quarter: 2011Q4

REPORT INFORMATION
  Report Type: 
  Country: None (occurrence: None)
  Receive Date: 20111220
  Receipt Date: 20111212
  Transmission Date: 20120403
  Serious: Yes (Other)
  Sender: FDA-Public Use
  Company Number: US-US-EMD SERONO, INC.-7101345

PATIENT
  Sex: Female

DRUGS (2)
  1. REBIF [Suspect]
     Indication: PRODUCT USED FOR UNKNOWN INDICATION
     Route: 058
     Dates: start: 20091109, end: 20111101
  2. REBIF [Suspect]
     Route: 058
     Dates: start: 20111101, end: 20111101

REACTIONS (1)
  - HERPES ZOSTER [None]
